FAERS Safety Report 7800052-2 (Version None)
Quarter: 2011Q4

REPORT INFORMATION
  Report Type: 
  Country: None (occurrence: None)
  Receive Date: 20111006
  Receipt Date: 20111002
  Transmission Date: 20120403
  Serious: Yes (Other)
  Sender: FDA-Public Use
  Company Number: CA-GLAXOSMITHKLINE-A0947171A

PATIENT
  Age: 37 Year
  Sex: Male

DRUGS (1)
  1. NICORETTE [Suspect]
     Indication: SMOKING CESSATION THERAPY
     Route: 002

REACTIONS (6)
  - DEPRESSION [None]
  - NICOTINE DEPENDENCE [None]
  - MALAISE [None]
  - SALIVARY GLAND CANCER [None]
  - TOOTH INJURY [None]
  - SKIN DISORDER [None]
